FAERS Safety Report 8047372-7 (Version None)
Quarter: 2012Q1

REPORT INFORMATION
  Report Type: 
  Country: None (occurrence: None)
  Receive Date: 20120116
  Receipt Date: 20120110
  Transmission Date: 20120608
  Serious: Yes (Death, Hospitalization)
  Sender: FDA-Public Use
  Company Number: US-GILEAD-2012-0049105

PATIENT
  Age: 77 Year
  Sex: Male

DRUGS (8)
  1. HYDRALAZINE HCL [Concomitant]
  2. LASIX [Concomitant]
  3. OMEPRAZOLE [Concomitant]
  4. REVATIO [Concomitant]
  5. METOPROLOL TARTRATE [Concomitant]
  6. ZOCOR [Concomitant]
  7. LETAIRIS [Suspect]
     Indication: PULMONARY HYPERTENSION
     Dosage: 5 MG, UNK
     Dates: start: 20111201
  8. NPH INSULIN [Concomitant]

REACTIONS (1)
  - RESPIRATORY FAILURE [None]
